FAERS Safety Report 4901347-2 (Version None)
Quarter: 2006Q1

REPORT INFORMATION
  Report Type: 
  Country: None (occurrence: None)
  Receive Date: 20060202
  Receipt Date: 20060109
  Transmission Date: 20060701
  Serious: Yes (Hospitalization)
  Sender: FDA-Public Use
  Company Number: 200601IM000050

PATIENT
  Age: 53 Year
  Sex: Male

DRUGS (3)
  1. INFERGEN [Suspect]
     Indication: HEPATITIS C
     Dosage: 15 UG, QD, SUBCUTANEOUS
     Route: 058
     Dates: start: 20050817, end: 20051209
  2. RIBAVIRIN [Concomitant]
  3. SYNTHROID [Concomitant]

REACTIONS (4)
  - BACK INJURY [None]
  - PNEUMONIA [None]
  - STAPHYLOCOCCAL INFECTION [None]
  - URINARY TRACT INFECTION [None]
